FAERS Safety Report 5072079-8 (Version None)
Quarter: 2006Q3

REPORT INFORMATION
  Report Type: 
  Country: None (occurrence: None)
  Receive Date: 20060807
  Receipt Date: 20060727
  Transmission Date: 20061208
  Serious: Yes (Other)
  Sender: FDA-Public Use
  Company Number: DE-JNJFOC-20060705552

PATIENT
  Age: 37 Year
  Sex: Female

DRUGS (4)
  1. REMICADE [Suspect]
     Indication: PSORIATIC ARTHROPATHY
     Dosage: WEEK 0, 2, 6 THEN EVERY 8 WEEKS.
     Route: 042
  2. METHOTREXATE [Concomitant]
     Route: 048
  3. DECORTIN [Concomitant]
     Route: 048
  4. VOLTAREN [Concomitant]
     Indication: PAIN MANAGEMENT
     Dosage: 1-3 TIMES TAKEN AS REQUIRED
     Route: 048

REACTIONS (5)
  - BLOOD PRESSURE DECREASED [None]
  - DIZZINESS [None]
  - FLUSHING [None]
  - INFUSION RELATED REACTION [None]
  - VISUAL DISTURBANCE [None]
